FAERS Safety Report 5349412-2 (Version None)
Quarter: 2007Q2

REPORT INFORMATION
  Report Type: 
  Country: None (occurrence: None)
  Receive Date: 20070607
  Receipt Date: 20070606
  Transmission Date: 20071010
  Serious: Yes (Other)
  Sender: FDA-Public Use
  Company Number: US-GENENTECH-233361

PATIENT
  Sex: Female

DRUGS (4)
  1. AVASTIN [Suspect]
     Indication: COLON CANCER
  2. FLUOROURACIL [Concomitant]
     Indication: COLON CANCER
  3. LEUCOVORIN CALCIUM [Concomitant]
     Indication: COLON CANCER
  4. OXALIPLATIN [Concomitant]
     Indication: COLON CANCER

REACTIONS (1)
  - RENAL FAILURE ACUTE [None]
